FAERS Safety Report 8818009 (Version 6)
Quarter: 2013Q1

REPORT INFORMATION
  Report Type: Spontaneous
  Country: US (occurrence: US)
  Receive Date: 20121001
  Receipt Date: 20130227
  Transmission Date: 20140127
  Serious: Yes (Hospitalization, Other)
  Sender: FDA-Public Use
  Company Number: US-ROXANE LABORATORIES, INC.-2012-RO-01918RO

PATIENT
  Age: 16 Year
  Sex: Male

DRUGS (9)
  1. DEXAMETHASONE [Suspect]
     Indication: ACUTE LYMPHOCYTIC LEUKAEMIA
     Dates: start: 20120828, end: 20120901
  2. DASATINIB [Suspect]
     Indication: ACUTE LYMPHOCYTIC LEUKAEMIA
     Dosage: 100 MG
     Route: 048
     Dates: start: 20120828, end: 20120902
  3. DASATINIB [Suspect]
     Dosage: 20 MG
     Route: 048
     Dates: start: 20121029, end: 20121116
  4. VINCRISTINE [Suspect]
     Indication: ACUTE LYMPHOCYTIC LEUKAEMIA
  5. DOXORUBICIN [Suspect]
     Indication: ACUTE LYMPHOCYTIC LEUKAEMIA
  6. METHOTREXATE [Suspect]
     Indication: ACUTE LYMPHOCYTIC LEUKAEMIA
     Dates: start: 20120901
  7. ETOPOSIDE [Suspect]
     Indication: ACUTE LYMPHOCYTIC LEUKAEMIA
     Dates: start: 20120830, end: 20120901
  8. CYTARABINE [Suspect]
     Indication: ACUTE LYMPHOCYTIC LEUKAEMIA
     Dates: start: 20120828, end: 20120829
  9. ASPARAGINASE [Suspect]
     Indication: ACUTE LYMPHOCYTIC LEUKAEMIA
     Dates: start: 20120902

REACTIONS (13)
  - Pleural effusion [Recovered/Resolved]
  - Pneumonia klebsiella [Unknown]
  - Sepsis [Recovered/Resolved]
  - Neutropenia [Unknown]
  - Blood creatinine increased [Recovered/Resolved]
  - Caecitis [Recovered/Resolved with Sequelae]
  - Renal failure acute [Recovered/Resolved]
  - Haemodynamic instability [Recovered/Resolved]
  - Respiratory distress [Recovered/Resolved]
  - Gastrointestinal necrosis [Recovered/Resolved with Sequelae]
  - Intestinal perforation [Recovered/Resolved with Sequelae]
  - Peritonitis [Recovered/Resolved with Sequelae]
  - Hypotension [Recovered/Resolved]
